FAERS Safety Report 4622742-5 (Version None)
Quarter: 2005Q1

REPORT INFORMATION
  Report Type: 
  Country: None (occurrence: None)
  Receive Date: 20050317
  Receipt Date: 20041124
  Transmission Date: 20050727
  Serious: Yes (Other)
  Sender: FDA-Public Use
  Company Number: PHEH2004US09669

PATIENT
  Age: 40 Year
  Sex: Female

DRUGS (12)
  1. TRILEPTAL [Suspect]
     Indication: AFFECTIVE DISORDER
     Dosage: 300 MG, BID; ORAL
     Route: 048
     Dates: start: 20040101, end: 20040728
  2. TRILEPTAL [Suspect]
     Dosage: 600 MG, BID
     Dates: start: 20040728, end: 20040907
  3. SEROQUEL [Concomitant]
  4. GEODON [Concomitant]
  5. EFFEXOR XR [Concomitant]
  6. MAXALT-MLT (RIZATRIPTAN BENZOATE) [Concomitant]
  7. TOPROL-XL [Concomitant]
  8. FUROSEMIDE [Concomitant]
  9. POTASSIUM CHLORIDE [Concomitant]
  10. WARFARIN SODIUM [Concomitant]
  11. NEXIUM/USA/(ESOMEPRAZOLE MAGNESIUM) [Concomitant]
  12. FLEXERIL [Concomitant]

REACTIONS (6)
  - BRONCHITIS [None]
  - DIARRHOEA [None]
  - GASTROOESOPHAGEAL REFLUX DISEASE [None]
  - HYPONATRAEMIA [None]
  - MYALGIA [None]
  - VOMITING [None]
